FAERS Safety Report 21956067 (Version 3)
Quarter: 2023Q2

REPORT INFORMATION
  Report Type: Other
  Country: CA (occurrence: CA)
  Receive Date: 20230206
  Receipt Date: 20230421
  Transmission Date: 20230722
  Serious: Yes (Hospitalization)
  Sender: FDA-Public Use
  Company Number: CA-CELLTRION INC.-2023CA002160

PATIENT

DRUGS (16)
  1. RITUXIMAB [Suspect]
     Active Substance: RITUXIMAB
     Indication: Rheumatoid arthritis
     Dosage: UNK
     Route: 065
  2. ACTEMRA [Suspect]
     Active Substance: TOCILIZUMAB
     Indication: Rheumatoid arthritis
     Dosage: 752 MG, 1 EVERY 4 WEEKS
     Route: 042
  3. ACTEMRA [Suspect]
     Active Substance: TOCILIZUMAB
     Dosage: 730 MG, 1 EVERY 4 WEEKS
     Route: 042
  4. ACTEMRA [Suspect]
     Active Substance: TOCILIZUMAB
     Indication: Rheumatoid arthritis
     Dosage: 376 MILLIGRAM, 1 EVERY 4 WEEKS
     Route: 042
  5. ASPIRIN [Concomitant]
     Active Substance: ASPIRIN
     Dosage: 81 MILLIGRAM
     Route: 065
  6. CALCIUM [Concomitant]
     Active Substance: CALCIUM
  7. DENOSUMAB [Concomitant]
     Active Substance: DENOSUMAB
     Dosage: 60 MILLIGRAM, 1 EVERY 6 MONTHS
     Route: 058
  8. FLAX SEEDS [Concomitant]
     Active Substance: FLAX SEEDS
  9. GABAPENTIN [Concomitant]
     Active Substance: GABAPENTIN
  10. MAGNESIUM [Concomitant]
     Active Substance: MAGNESIUM
  11. MICARDIS [Concomitant]
     Active Substance: TELMISARTAN
     Dosage: 40 MILLIGRAM, 1 EVERY 1 DAYS
     Route: 048
  12. MORPHINE [Concomitant]
     Active Substance: MORPHINE
     Dosage: 5 MILLIGRAM
     Route: 065
  13. PREDNISONE [Concomitant]
     Active Substance: PREDNISONE
     Indication: Product used for unknown indication
     Dosage: 5 MILLIGRAM, 1 EVERY 1 DAYS
     Route: 048
  14. RANITIDINE [Concomitant]
     Active Substance: RANITIDINE
     Dosage: 300 MILLIGRAM, 1 EVERY 1 DAYS
     Route: 048
  15. RISEDRONATE SODIUM [Concomitant]
     Active Substance: RISEDRONATE SODIUM
  16. ZYLOPRIM [Concomitant]
     Active Substance: ALLOPURINOL
     Dosage: 300 MILLIGRAM, 1 EVERY 1 DAYS
     Route: 048

REACTIONS (8)
  - Cholelithiasis [Unknown]
  - Decreased appetite [Unknown]
  - Malaise [Unknown]
  - Weight decreased [Unknown]
  - Weight increased [Unknown]
  - Arthralgia [Unknown]
  - Asthenia [Unknown]
  - Drug ineffective [Unknown]
